FAERS Safety Report 6090998-0 (Version None)
Quarter: 2009Q1

REPORT INFORMATION
  Report Type: 
  Country: None (occurrence: None)
  Receive Date: 20090218
  Receipt Date: 20090218
  Transmission Date: 20090719
  Serious: No
  Sender: FDA-Public Use
  Company Number: None

PATIENT
  Age: 59 Year
  Sex: Female
  Weight: 72.5755 kg

DRUGS (1)
  1. CEPHALEXIN [Suspect]
     Indication: PHARYNGITIS
     Dosage: TAKE ONE CAPSULE BY MOUTH 4 TIMES A DAY PO
     Route: 048
     Dates: start: 20090217, end: 20090224

REACTIONS (2)
  - CHEST DISCOMFORT [None]
  - FATIGUE [None]
